FAERS Safety Report 10028113 (Version 1)
Quarter: 2014Q1

REPORT INFORMATION
  Report Type: Spontaneous
  Country: US (occurrence: None)
  Receive Date: 20140305
  Receipt Date: 20140305
  Transmission Date: 20141002
  Serious: Yes (Other)
  Sender: FDA-Public Use
  Company Number: ADR-2014-00098

PATIENT
  Age: 11 Year
  Sex: Female

DRUGS (1)
  1. LIORESAL INTRATHECAL (BACLOFEN INJECTION)2000 MCG/ML [Suspect]
     Indication: MUSCLE SPASTICITY
     Dosage: 199 MCG/DAY
     Dates: start: 20120830

REACTIONS (10)
  - Heart rate irregular [None]
  - Rash generalised [None]
  - Implant site rash [None]
  - Tachycardia [None]
  - Anxiety [None]
  - Pyrexia [None]
  - Implant site fibrosis [None]
  - Clonus [None]
  - Muscle spasticity [None]
  - Device kink [None]
